FAERS Safety Report 5015997-9 (Version None)
Quarter: 2006Q2

REPORT INFORMATION
  Report Type: 
  Country: None (occurrence: None)
  Receive Date: 20060414
  Receipt Date: 20060313
  Transmission Date: 20061013
  Serious: No
  Sender: FDA-Public Use
  Company Number: 2006SP001209

PATIENT
  Age: 49 Year
  Sex: Female
  Weight: 88.905 kg

DRUGS (2)
  1. LUNESTA [Suspect]
     Indication: INSOMNIA
     Dosage: 1 MG;1X;ORAL
     Route: 048
     Dates: start: 20060310, end: 20060310
  2. OXYCODONE HCL [Concomitant]

REACTIONS (3)
  - AMNESIA [None]
  - ROAD TRAFFIC ACCIDENT [None]
  - SLEEP WALKING [None]
